FAERS Safety Report 19608930 (Version 1)
Quarter: 2021Q3

REPORT INFORMATION
  Report Type: Spontaneous
  Country: US (occurrence: US)
  Receive Date: 20210723
  Receipt Date: 20210723
  Transmission Date: 20211014
  Serious: Yes (Death)
  Sender: FDA-Public Use
  Company Number: None

PATIENT
  Age: 88 Year
  Sex: Male

DRUGS (1)
  1. ARANESP [Suspect]
     Active Substance: DARBEPOETIN ALFA
     Indication: ANAEMIA
     Dosage: OTHER STRENGTH:100MCG/0.5ML;?
     Route: 058
     Dates: start: 202004, end: 202008

REACTIONS (1)
  - Death [None]

NARRATIVE: CASE EVENT DATE: 2021
